FAERS Safety Report 22303108 (Version 3)
Quarter: 2023Q2

REPORT INFORMATION
  Report Type: Spontaneous
  Country: ES (occurrence: ES)
  Receive Date: 20230510
  Receipt Date: 20230601
  Transmission Date: 20230722
  Serious: Yes (Other)
  Sender: FDA-Public Use
  Company Number: ES-UCBSA-2023023906

PATIENT
  Sex: Male

DRUGS (1)
  1. NEUPRO [Suspect]
     Active Substance: ROTIGOTINE
     Indication: Restless legs syndrome
     Dosage: 1 MILLIGRAM, UNK
     Route: 062
     Dates: start: 2022

REACTIONS (3)
  - Erectile dysfunction [Not Recovered/Not Resolved]
  - Application site discomfort [Unknown]
  - Drug intolerance [Unknown]
